FAERS Safety Report 8532598-6 (Version None)
Quarter: 2012Q3

REPORT INFORMATION
  Report Type: 
  Country: None (occurrence: None)
  Receive Date: 20120724
  Receipt Date: 20120719
  Transmission Date: 20120928
  Serious: Yes (Other)
  Sender: FDA-Public Use
  Company Number: US-PFIZER INC-2012175577

PATIENT
  Sex: Female
  Weight: 79.365 kg

DRUGS (9)
  1. FLECTOR [Suspect]
     Indication: MUSCULOSKELETAL PAIN
  2. CYMBALTA [Suspect]
     Dosage: UNK, 2X/DAY
  3. NIACIN [Suspect]
     Indication: HYPERTENSION
     Dosage: UNK, DAILY
  4. NIACIN [Suspect]
     Dosage: UNK, DAILY
     Dates: start: 20120101, end: 20120101
  5. LISINOPRIL [Concomitant]
     Indication: HYPERTENSION
     Dosage: 20 MG,DAILY
  6. HYDROCHLOROTHIAZIDE [Concomitant]
     Indication: HYPERTENSION
     Dosage: 12.5 MG,DAILY
  7. CYMBALTA [Suspect]
     Indication: ARTHRITIS
     Dosage: UNK, 2X/DAY
  8. FLECTOR [Suspect]
     Indication: BACK PAIN
     Dosage: UNK
     Dates: start: 20110101, end: 20120101
  9. FLEXERIL [Concomitant]
     Indication: PAIN
     Dosage: 10 MG, AS NEEDED

REACTIONS (4)
  - PRURITUS GENERALISED [None]
  - BLOOD CHOLESTEROL ABNORMAL [None]
  - HYPERSENSITIVITY [None]
  - RASH GENERALISED [None]
